FAERS Safety Report 8288096-0 (Version None)
Quarter: 2012Q2

REPORT INFORMATION
  Report Type: 
  Country: None (occurrence: None)
  Receive Date: 20120416
  Receipt Date: 20120406
  Transmission Date: 20120825
  Serious: Yes (Other)
  Sender: FDA-Public Use
  Company Number: US-ASTRAZENECA-2012SE23060

PATIENT
  Sex: Male

DRUGS (1)
  1. NEXIUM [Suspect]
     Route: 048

REACTIONS (1)
  - AMYOTROPHIC LATERAL SCLEROSIS [None]
